FAERS Safety Report 12118969 (Version 2)
Quarter: 2016Q1

REPORT INFORMATION
  Report Type: Spontaneous
  Country: CH (occurrence: CH)
  Receive Date: 20160226
  Receipt Date: 20160301
  Transmission Date: 20160526
  Serious: Yes (Death, Other)
  Sender: FDA-Public Use
  Company Number: CH-B.I. PHARMACEUTICALS,INC./RIDGEFIELD-2016-BI-11898SI

PATIENT
  Sex: Male

DRUGS (1)
  1. OFEV [Suspect]
     Active Substance: NINTEDANIB
     Indication: PULMONARY FIBROSIS
     Dosage: 300 MG
     Route: 065
     Dates: start: 20150417, end: 20160114

REACTIONS (4)
  - Pulmonary fibrosis [Unknown]
  - Completed suicide [Fatal]
  - Acute respiratory failure [Unknown]
  - Psychiatric decompensation [Unknown]
